FAERS Safety Report 9476061 (Version 2)
Quarter: 2013Q4

REPORT INFORMATION
  Report Type: Spontaneous
  Country: BR (occurrence: None)
  Receive Date: 20130821
  Receipt Date: 20131016
  Transmission Date: 20140711
  Serious: Yes (Hospitalization, Other)
  Sender: FDA-Public Use
  Company Number: DSJ-2013-18151

PATIENT
  Age: 80 Year
  Sex: Female
  Weight: 72 kg

DRUGS (5)
  1. BENICAR HCT [Suspect]
     Indication: HYPERTENSION
     Route: 048
     Dates: start: 2005
  2. DEXTRAN/HYPROMELLOSE [Concomitant]
  3. ESOMEPRAZOLE (ESOMEPRAZOLE) [Concomitant]
  4. MEDICINES FOR HYPERCHOLESTEROLEMIA [Concomitant]
  5. MEDICINES FOR BONE DISORDER [Concomitant]

REACTIONS (12)
  - Headache [None]
  - Pyrexia [None]
  - Asthenia [None]
  - Diarrhoea [None]
  - Heat stroke [None]
  - Influenza [None]
  - Bronchitis [None]
  - Insomnia [None]
  - Cough [None]
  - Rhinitis [None]
  - Weight decreased [None]
  - Neoplasm malignant [None]
